FAERS Safety Report 6779675-8 (Version None)
Quarter: 2010Q2

REPORT INFORMATION
  Report Type: 
  Country: None (occurrence: None)
  Receive Date: 20100618
  Receipt Date: 20100615
  Transmission Date: 20101027
  Serious: Yes (Life-Threatening)
  Sender: FDA-Public Use
  Company Number: JP-ASTRAZENECA-2010SE25846

PATIENT
  Age: 71 Year
  Sex: Male
  Weight: 62 kg

DRUGS (6)
  1. CRESTOR [Suspect]
     Indication: HYPERCHOLESTEROLAEMIA
     Route: 048
     Dates: start: 20100514, end: 20100602
  2. JANUVIA [Suspect]
     Route: 048
     Dates: start: 20100515, end: 20100603
  3. ZOSYN [Concomitant]
     Route: 042
     Dates: start: 20100521, end: 20100527
  4. CLARITH [Concomitant]
     Route: 048
     Dates: start: 20100521, end: 20100527
  5. AMARYL [Concomitant]
     Route: 048
     Dates: start: 20100601
  6. FLUMARIN [Concomitant]
     Route: 042
     Dates: start: 20100601

REACTIONS (1)
  - INTERSTITIAL LUNG DISEASE [None]
